FAERS Safety Report 5321427-X (Version None)
Quarter: 2007Q2

REPORT INFORMATION
  Report Type: 
  Country: None (occurrence: None)
  Receive Date: 20070510
  Receipt Date: 20070425
  Transmission Date: 20071010
  Serious: Yes (Hospitalization)
  Sender: FDA-Public Use
  Company Number: DE-PURDUE-DEU_2007_0003285

PATIENT
  Age: 65 Year
  Sex: Female
  Weight: 61 kg

DRUGS (5)
  1. OXY/NALOX CR TABS VS OXY CR TABS [Suspect]
     Indication: PAIN
     Dosage: 80 MG, DAILY
     Route: 048
     Dates: start: 20070124, end: 20070323
  2. APONAL [Concomitant]
  3. MARCUMAR [Concomitant]
  4. CALCIMAGON-D3 [Concomitant]
  5. LACTULOSE [Concomitant]

REACTIONS (2)
  - BILE DUCT STONE [None]
  - PNEUMONIA [None]
